FAERS Safety Report 18265404 (Version 1)
Quarter: 2020Q3

REPORT INFORMATION
  Report Type: Other
  Country: US (occurrence: US)
  Receive Date: 20200914
  Receipt Date: 20200914
  Transmission Date: 20201103
  Serious: No
  Sender: FDA-Public Use
  Company Number: US-LEADIANT BIOSCIENCES INC-2020STPI000171

PATIENT
  Age: 9 Year
  Sex: Male

DRUGS (4)
  1. GLEOSTINE [Concomitant]
     Active Substance: LOMUSTINE
  2. MATULANE [Suspect]
     Active Substance: PROCARBAZINE HYDROCHLORIDE
     Indication: BRAIN NEOPLASM MALIGNANT
     Dosage: 1 CAPSULE ?50 MG (4 DOSES) Q6HRS
     Route: 048
     Dates: start: 20190718
  3. TABLOID [Concomitant]
     Active Substance: THIOGUANINE
  4. MARQIBO [Concomitant]
     Active Substance: VINCRISTINE SULFATE

REACTIONS (3)
  - Product administration interrupted [Not Recovered/Not Resolved]
  - Neutrophil count decreased [Not Recovered/Not Resolved]
  - Platelet count decreased [Not Recovered/Not Resolved]

NARRATIVE: CASE EVENT DATE: 20200406
